FAERS Safety Report 8509836-9 (Version None)
Quarter: 2012Q3

REPORT INFORMATION
  Report Type: 
  Country: None (occurrence: None)
  Receive Date: 20120713
  Receipt Date: 20110614
  Transmission Date: 20120928
  Serious: No
  Sender: FDA-Public Use
  Company Number: US-BAYER-2011-051537

PATIENT

DRUGS (1)
  1. MAGNEVIST [Suspect]
     Dosage: PHARMACY MIXES A COCKTAIL WHICH INCLUDES 1-2 ML OF MAGNEVIST FROM 5 ML BOTTLE
     Route: 042
     Dates: start: 20110610

REACTIONS (1)
  - NO ADVERSE EVENT [None]
